FAERS Safety Report 8993528 (Version 1)
Quarter: 2013Q1

REPORT INFORMATION
  Report Type: Report from Study
  Country: CZ (occurrence: CZ)
  Receive Date: 20130102
  Receipt Date: 20130102
  Transmission Date: 20140127
  Serious: Yes (Death, Hospitalization)
  Sender: FDA-Public Use
  Company Number: CZ-BRISTOL-MYERS SQUIBB COMPANY-14935431

PATIENT
  Age: 64 Year
  Sex: Male

DRUGS (10)
  1. DASATINIB [Suspect]
     Indication: PROSTATE CANCER
     Dosage: INTERRUPTED ON 15JAN10,?ALSO INTERPD FROM 16JAN2010 TILL 26JAN2010
     Route: 048
     Dates: start: 20091123
  2. DOCETAXEL [Suspect]
     Indication: PROSTATE CANCER
     Dosage: 1DF=75MG/M2 AND 60MG/M2,INTERRUPTED ON 06JAN2010?ALSO INTERPD FROM 16JAN2010 TILL 26JAN2010
     Route: 042
     Dates: start: 20091123
  3. PREDNISONE [Suspect]
     Indication: PROSTATE CANCER
     Dosage: INTERRUPTED ON 15JAN2010?ALSO INTERPD FROM 16JAN2010 TILL 26JAN2010
     Route: 048
     Dates: start: 20091123
  4. DEXAMETHASONE [Suspect]
     Indication: PREMEDICATION
     Dosage: 8 MG AT 12 HOURS, 3 HOURS AND 1 HOUR PRIOR TO DOCETAXEL INFUSION AS PRE-MEDICATION
     Dates: end: 20100120
  5. EZETIMIBE [Concomitant]
     Dates: start: 2007, end: 20100120
  6. AMILORIDE HCL + HCTZ [Concomitant]
     Dates: start: 2003, end: 20100120
  7. DOXAZOSIN [Concomitant]
     Dates: start: 2008, end: 20100120
  8. SILYMARIN [Concomitant]
     Dates: start: 2004, end: 20100120
  9. ALLOPURINOL [Concomitant]
     Dates: start: 2004, end: 20100120
  10. ZOLEDRONIC ACID [Concomitant]
     Dates: start: 20090716, end: 20100120

REACTIONS (1)
  - Lower gastrointestinal haemorrhage [Fatal]
